FAERS Safety Report 7327119-X (Version None)
Quarter: 2011Q1

REPORT INFORMATION
  Report Type: 
  Country: None (occurrence: None)
  Receive Date: 20110218
  Receipt Date: 20110204
  Transmission Date: 20110831
  Serious: Yes (Other)
  Sender: FDA-Public Use
  Company Number: DSU-2011-00937

PATIENT
  Age: 67 Year
  Sex: Female
  Weight: 86.1834 kg

DRUGS (4)
  1. AZOR [Suspect]
     Indication: HYPERTENSION
     Dosage: 50/20MG (QD), PER ORAL, 5/4MG,ORAL
     Route: 048
     Dates: start: 20101201
  2. AZOR [Suspect]
     Indication: HYPERTENSION
     Dosage: 50/20MG (QD), PER ORAL, 5/4MG,ORAL
     Route: 048
     Dates: start: 20101201
  3. SYNTHROID [Concomitant]
  4. SYNTHROID (LEVOTHYROXINE SODIUM (LEVOTHYROXINE SODIUM) [Concomitant]

REACTIONS (3)
  - HEADACHE [None]
  - MACULAR DEGENERATION [None]
  - INCORRECT DRUG DOSAGE FORM ADMINISTERED [None]
